FAERS Safety Report 12664143 (Version 1)
Quarter: 2016Q3

REPORT INFORMATION
  Report Type: Report from Study
  Country: US (occurrence: US)
  Receive Date: 20160818
  Receipt Date: 20160818
  Transmission Date: 20161109
  Serious: Yes (Other)
  Sender: FDA-Public Use
  Company Number: US-ARIAD PHARMACEUTICALS, INC-2015US005374

PATIENT
  Sex: Male

DRUGS (3)
  1. ICLUSIG [Suspect]
     Active Substance: PONATINIB
     Dosage: 15 MG, QD
     Route: 048
  2. ICLUSIG [Suspect]
     Active Substance: PONATINIB
     Dosage: 15 MG, QD
     Route: 048
     Dates: start: 20131125
  3. ICLUSIG [Suspect]
     Active Substance: PONATINIB
     Indication: CHRONIC MYELOID LEUKAEMIA
     Dosage: 45 MG, QD
     Route: 048
     Dates: start: 20130716

REACTIONS (18)
  - Nephrolithiasis [Unknown]
  - Obesity [Unknown]
  - Bronchitis chronic [Unknown]
  - Sleep apnoea syndrome [Unknown]
  - Back pain [Recovered/Resolved]
  - Fatigue [Unknown]
  - Hypertension [Unknown]
  - Asthma [Unknown]
  - Anxiety [Unknown]
  - Sinus tachycardia [Unknown]
  - Depression [Unknown]
  - Hypercholesterolaemia [Unknown]
  - Dyspnoea [Unknown]
  - Arthritis [Unknown]
  - Anaemia [Unknown]
  - Sinusitis [Unknown]
  - Gout [Unknown]
  - Peripheral swelling [Unknown]
